FAERS Safety Report 9820562 (Version 3)
Quarter: 2014Q1

REPORT INFORMATION
  Report Type: Spontaneous
  Country: US (occurrence: US)
  Receive Date: 20140116
  Receipt Date: 20140317
  Transmission Date: 20141002
  Serious: Yes (Other)
  Sender: FDA-Public Use
  Company Number: US-BAYER-2014-007130

PATIENT
  Age: 31 Year
  Sex: Female

DRUGS (1)
  1. MIRENA [Suspect]
     Dosage: 20 MCG/24HR, CONT
     Route: 015
     Dates: start: 20091002

REACTIONS (4)
  - Device breakage [None]
  - Complication of device removal [None]
  - Device difficult to use [Not Recovered/Not Resolved]
  - Embedded device [Not Recovered/Not Resolved]
